FAERS Safety Report 7484125-2 (Version None)
Quarter: 2011Q2

REPORT INFORMATION
  Report Type: 
  Country: None (occurrence: None)
  Receive Date: 20110517
  Receipt Date: 20091106
  Transmission Date: 20111010
  Serious: Yes (Hospitalization, Other)
  Sender: FDA-Public Use
  Company Number: US-BAYER-200938889NA

PATIENT
  Age: 82 Year
  Sex: Male
  Weight: 83 kg

DRUGS (39)
  1. TRASYLOL [Suspect]
     Indication: CORONARY ARTERY BYPASS
     Dosage: 200 ML, (PRIME)
     Route: 042
     Dates: start: 20040422, end: 20040422
  2. LISINOPRIL [Concomitant]
     Dosage: 5 MG, QD
     Route: 048
     Dates: start: 20030717, end: 20040717
  3. ACETAMINOPHEN [Concomitant]
     Dosage: UNK UNK, PRN
     Route: 048
  4. RED BLOOD CELLS [Concomitant]
     Dosage: 2 U, UNK
     Route: 042
     Dates: start: 20040422, end: 20040422
  5. PLATELETS [Concomitant]
     Dosage: 6 U, UNK
     Route: 042
     Dates: start: 20040422, end: 20040422
  6. RABEPRAZOLE SODIUM [Concomitant]
     Dosage: 20 MG, QD
     Route: 048
     Dates: start: 20020716
  7. SUFENTANIL [Concomitant]
     Dosage: UNK
     Dates: start: 20040422
  8. HEPARIN [Concomitant]
     Dosage: UNK
     Dates: start: 20040422
  9. PLENDIL [Concomitant]
     Dosage: 5 MG, QD
     Route: 048
     Dates: start: 20030429, end: 20040429
  10. NITROGLYCERIN [Concomitant]
     Dosage: 0.4 MG, PRN
     Route: 060
  11. VITAMIN C [Concomitant]
     Dosage: 500 MG, QD
     Route: 048
  12. VITAMIN E [Concomitant]
     Dosage: 400 IU, QD
     Route: 048
  13. FERROUS SULFATE TAB [Concomitant]
  14. FLUOXETINE HCL [Concomitant]
  15. DARVOCET-N 50 [Concomitant]
     Dosage: N-100
  16. CIPRO [Concomitant]
     Indication: PROSTATITIS
     Dosage: 500 MG, BID
     Dates: start: 20031208, end: 20040107
  17. PHENYLEPHRINE HCL [Concomitant]
     Dosage: UNK
     Dates: start: 20040422
  18. PROTAMINE SULFATE [Concomitant]
     Dosage: UNK
     Dates: start: 20040422
  19. ATENOLOL [Concomitant]
     Dosage: 25 MG, QD
     Route: 048
     Dates: start: 20020716
  20. FLOMAX [Concomitant]
     Dosage: 0.4 MG, QD
     Route: 048
     Dates: start: 20030825, end: 20040825
  21. NITROGLYCERIN [Concomitant]
     Dosage: UNK
     Dates: start: 20040422
  22. SAW PALMETTO [Concomitant]
     Dosage: 160 MG, BID
     Route: 048
  23. CYANOCOBALAMIN [Concomitant]
     Dosage: 1 MG QMONTHLY INJECTION
  24. ACETYLSALICYLIC ACID SRT [Concomitant]
     Dosage: 81 MG, QD
     Route: 048
  25. MEVACOR [Concomitant]
     Dosage: 20 MG, QD
     Route: 048
  26. XANAX [Concomitant]
     Dosage: .25 MG, PRN
     Route: 048
     Dates: start: 20031208, end: 20040609
  27. FLUNISOLIDE [Concomitant]
  28. OMEPRAZOLE [Concomitant]
     Dosage: 20 MG, UNK
  29. NIFEDIPINE [Concomitant]
     Dosage: 30 MG, UNK
     Route: 048
     Dates: start: 20030429, end: 20040429
  30. DOBUTAMINE HYDROCHLORIDE [Concomitant]
     Dosage: UNK
     Dates: start: 20040422
  31. FRESH FROZEN PLASMA [Concomitant]
     Dosage: 2 U, UNK
     Route: 042
     Dates: start: 20040422, end: 20040422
  32. TRASYLOL [Suspect]
     Indication: AORTIC VALVE REPLACEMENT
     Dosage: 50 ML/HR (INFUSION)
     Route: 042
     Dates: start: 20040422, end: 20040422
  33. AMOXICILLIN [Concomitant]
     Dosage: 500 MG, BEFORE DENTAL APPOINTMENT
     Route: 048
  34. INSULIN [Concomitant]
     Dosage: UNK
     Dates: start: 20040422
  35. MIDAZOLAM HCL [Concomitant]
     Dosage: UNK
     Dates: start: 20040422
  36. FOLIC ACID [Concomitant]
     Dosage: 1 MG, QD
     Route: 048
  37. LOVASTATIN [Concomitant]
     Dosage: 20 MG, UNK
     Route: 048
     Dates: start: 20030911, end: 20040911
  38. PRIMACOR [Concomitant]
     Dosage: UNK
     Dates: start: 20040422
  39. MANNITOL [Concomitant]
     Dosage: UNK
     Dates: start: 20040422

REACTIONS (10)
  - INJURY [None]
  - ANHEDONIA [None]
  - RENAL FAILURE [None]
  - EMOTIONAL DISTRESS [None]
  - ANXIETY [None]
  - FEAR [None]
  - STRESS [None]
  - RENAL INJURY [None]
  - PAIN [None]
  - UNEVALUABLE EVENT [None]
